FAERS Safety Report 11672924 (Version 1)
Quarter: 2015Q4

REPORT INFORMATION
  Report Type: Spontaneous
  Country: US (occurrence: US)
  Receive Date: 20151028
  Receipt Date: 20151028
  Transmission Date: 20160304
  Serious: Yes (Other)
  Sender: FDA-Public Use
  Company Number: US-ACCORD-034743

PATIENT
  Age: 44 Year
  Sex: Female

DRUGS (1)
  1. QUETIAPINE FUMARATE ACCORD [Suspect]
     Active Substance: QUETIAPINE FUMARATE
     Indication: BIPOLAR DISORDER
     Dosage: STERNGTH: 100 MG

REACTIONS (3)
  - Dry mouth [Unknown]
  - Alveolar bone resorption [Unknown]
  - Tooth fracture [Unknown]
